FAERS Safety Report 4639523-9 (Version None)
Quarter: 2005Q2

REPORT INFORMATION
  Report Type: 
  Country: None (occurrence: None)
  Receive Date: 20050418
  Receipt Date: 20050406
  Transmission Date: 20051028
  Serious: Yes (Life-Threatening)
  Sender: FDA-Public Use
  Company Number: 2005056450

PATIENT
  Age: 47 Year
  Sex: Male

DRUGS (8)
  1. ALDACTONE [Suspect]
     Indication: ILL-DEFINED DISORDER
     Dosage: 50 MG (DAILY), ORAL
     Route: 048
     Dates: end: 20050104
  2. CARVEDILOL [Concomitant]
  3. LISINOPRIL DIHYDRATE (LISINOPRIL DIHYDRATE) [Concomitant]
  4. METFORMIN HCL [Concomitant]
  5. AMIODARONE HCL [Concomitant]
  6. DIGOXIN [Concomitant]
  7. GLICLAZIDE (GLICLAZIDE) [Concomitant]
  8. ASPIRIN [Concomitant]

REACTIONS (3)
  - ATRIAL FIBRILLATION [None]
  - DYSPNOEA [None]
  - HYPERKALAEMIA [None]
